FAERS Safety Report 13533206 (Version 2)
Quarter: 2017Q3

REPORT INFORMATION
  Report Type: Spontaneous
  Country: US (occurrence: US)
  Receive Date: 20170510
  Receipt Date: 20170901
  Transmission Date: 20171127
  Serious: Yes (Hospitalization)
  Sender: FDA-Public Use
  Company Number: US-JNJFOC-20170508362

PATIENT
  Age: 43 Year
  Sex: Male

DRUGS (2)
  1. GLUCOPHAGE [Concomitant]
     Active Substance: METFORMIN HYDROCHLORIDE
     Indication: PRODUCT USED FOR UNKNOWN INDICATION
     Dosage: 500 MG TWICE IN DAY AND THEN ONCE AT NIGHT.
     Route: 048
     Dates: start: 2013
  2. INVOKANA [Suspect]
     Active Substance: CANAGLIFLOZIN
     Indication: TYPE 2 DIABETES MELLITUS
     Route: 048
     Dates: start: 20140210, end: 20140504

REACTIONS (2)
  - Pyelonephritis [Unknown]
  - Diabetic ketoacidosis [Unknown]

NARRATIVE: CASE EVENT DATE: 201404
